FAERS Safety Report 7988413 (Version 5)
Quarter: 2013Q1

REPORT INFORMATION
  Report Type: Spontaneous
  Country: US (occurrence: US)
  Receive Date: 20110613
  Receipt Date: 20130325
  Transmission Date: 20140127
  Serious: Yes (Hospitalization, Other)
  Sender: FDA-Public Use
  Company Number: US-ASTRAZENECA-2011SE34158

PATIENT
  Age: 81 Year
  Sex: Female

DRUGS (4)
  1. NEXIUM [Suspect]
     Indication: HIATUS HERNIA
     Route: 048
  2. NEXIUM [Suspect]
     Indication: HIATUS HERNIA
     Route: 048
  3. CRESTOR [Concomitant]
     Route: 048
  4. TOPROL XL [Concomitant]
     Route: 048

REACTIONS (11)
  - Anorectal infection [Unknown]
  - Gastric infection [Unknown]
  - Cerebrovascular accident [Unknown]
  - Diabetes mellitus [Unknown]
  - Fall [Unknown]
  - Influenza [Unknown]
  - Hernia [Unknown]
  - Pneumonia [Unknown]
  - Dyspepsia [Unknown]
  - Back disorder [Unknown]
  - Intentional drug misuse [Unknown]
